FAERS Safety Report 6311468-8 (Version None)
Quarter: 2009Q3

REPORT INFORMATION
  Report Type: 
  Country: None (occurrence: None)
  Receive Date: 20090817
  Receipt Date: 20090715
  Transmission Date: 20100115
  Serious: No
  Sender: FDA-Public Use
  Company Number: US-BAYER-200926897NA

PATIENT
  Age: 91 Year
  Sex: Female

DRUGS (5)
  1. CIPRO [Suspect]
     Indication: URINARY TRACT INFECTION
     Dosage: TOTAL DAILY DOSE: 500 MG  UNIT DOSE: 250 MG
     Dates: start: 20090702, end: 20090712
  2. DILTIAZEM [Concomitant]
  3. ALTACE [Concomitant]
  4. NADOLOL [Concomitant]
  5. PLAVIX [Concomitant]

REACTIONS (1)
  - DIZZINESS [None]
